FAERS Safety Report 21625922 (Version 6)
Quarter: 2023Q2

REPORT INFORMATION
  Report Type: Spontaneous
  Country: US (occurrence: US)
  Receive Date: 20221122
  Receipt Date: 20230405
  Transmission Date: 20230722
  Serious: No
  Sender: FDA-Public Use
  Company Number: US-BIOGEN-2022BI01140631

PATIENT
  Sex: Female

DRUGS (1)
  1. TYSABRI [Suspect]
     Active Substance: NATALIZUMAB
     Indication: Multiple sclerosis
     Dosage: INFUSED OVER 1 HOUR
     Route: 050
     Dates: start: 20211018

REACTIONS (6)
  - Inappropriate schedule of product administration [Unknown]
  - SARS-CoV-2 test positive [Unknown]
  - Malaise [Unknown]
  - Multiple sclerosis [Unknown]
  - Flushing [Not Recovered/Not Resolved]
  - Fatigue [Unknown]
